FAERS Safety Report 25390640 (Version 2)
Quarter: 2025Q3

REPORT INFORMATION
  Report Type: Spontaneous
  Country: JP (occurrence: JP)
  Receive Date: 20250603
  Receipt Date: 20250805
  Transmission Date: 20251021
  Serious: Yes (Hospitalization)
  Sender: BRISTOL-MYERS SQUIBB COMPANY
  Company Number: JP-BRISTOL-MYERS SQUIBB COMPANY-2024-073021

PATIENT
  Age: 78 Year
  Sex: Female
  Weight: 37.5 kg

DRUGS (7)
  1. ORENCIA [Suspect]
     Active Substance: ABATACEPT
     Indication: Rheumatoid arthritis
     Route: 041
     Dates: end: 20230421
  2. PREDNISOLONE [Suspect]
     Active Substance: PREDNISOLONE
     Indication: Rheumatoid arthritis
     Route: 048
  3. TACROLIMUS [Suspect]
     Active Substance: TACROLIMUS
     Indication: Rheumatoid arthritis
     Route: 048
     Dates: end: 20230502
  4. FAMOTIDINE [Concomitant]
     Active Substance: FAMOTIDINE
     Indication: Rheumatoid arthritis
     Route: 048
  5. LYRICA [Concomitant]
     Active Substance: PREGABALIN
     Indication: Rheumatoid arthritis
     Route: 048
  6. LIMAPROST [Concomitant]
     Active Substance: LIMAPROST
     Indication: Rheumatoid arthritis
     Route: 048
  7. CALONAL [Concomitant]
     Active Substance: ACETAMINOPHEN
     Indication: Rheumatoid arthritis
     Route: 048

REACTIONS (2)
  - Cat scratch disease [Recovering/Resolving]
  - Multi-organ disorder [Recovering/Resolving]

NARRATIVE: CASE EVENT DATE: 20230329
